FAERS Safety Report 25912627 (Version 1)
Quarter: 2025Q4

REPORT INFORMATION
  Report Type: Spontaneous
  Country: US (occurrence: US)
  Receive Date: 20251013
  Receipt Date: 20251013
  Transmission Date: 20260117
  Serious: Yes (Death, Life-Threatening, Hospitalization, Other)
  Sender: SANDOZ
  Company Number: US-NOVPHSZ-PHHY2016US181058

PATIENT
  Age: 60 Year
  Sex: Male

DRUGS (2)
  1. CYCLOPHOSPHAMIDE [Suspect]
     Active Substance: CYCLOPHOSPHAMIDE
     Indication: Chemotherapy
     Dosage: UNK 3 CYCLICIAL
     Route: 065
  2. DOCETAXEL [Suspect]
     Active Substance: DOCETAXEL
     Indication: Breast cancer
     Dosage: 3 CYCLICAL
     Route: 065

REACTIONS (7)
  - Multiple organ dysfunction syndrome [Fatal]
  - Pneumocystis jirovecii pneumonia [Fatal]
  - Stevens-Johnson syndrome [Fatal]
  - Pulmonary alveolar haemorrhage [Fatal]
  - Metabolic acidosis [Fatal]
  - Disseminated intravascular coagulation [Fatal]
  - Respiratory failure [Fatal]
